FAERS Safety Report 12289891 (Version 1)
Quarter: 2016Q2

REPORT INFORMATION
  Report Type: Spontaneous
  Country: US (occurrence: US)
  Receive Date: 20160421
  Receipt Date: 20160421
  Transmission Date: 20160815
  Serious: Yes (Death)
  Sender: FDA-Public Use
  Company Number: US-TAIHO ONCOLOGY INC-EU-2015-00384

PATIENT
  Age: 53 Year
  Sex: Female

DRUGS (5)
  1. PEPCID [Concomitant]
     Active Substance: FAMOTIDINE
     Dosage: NI
  2. LONSURF [Suspect]
     Active Substance: TIPIRACIL HYDROCHLORIDE\TRIFLURIDINE
     Indication: COLON CANCER
     Route: 048
     Dates: start: 20151031
  3. NEXIUM [Concomitant]
     Active Substance: ESOMEPRAZOLE MAGNESIUM
     Dosage: NI
  4. ALEVE [Concomitant]
     Active Substance: NAPROXEN SODIUM
     Dosage: NI
  5. HYDROCODONE [Concomitant]
     Active Substance: HYDROCODONE
     Dosage: NI

REACTIONS (6)
  - Drug ineffective [Unknown]
  - Dizziness [Not Recovered/Not Resolved]
  - Abdominal pain upper [Not Recovered/Not Resolved]
  - Disease progression [Unknown]
  - Nausea [Not Recovered/Not Resolved]
  - Death [Fatal]

NARRATIVE: CASE EVENT DATE: 20151231
